FAERS Safety Report 9730925 (Version 1)
Quarter: 2013Q4

REPORT INFORMATION
  Report Type: Spontaneous
  Country: US (occurrence: US)
  Receive Date: 20131205
  Receipt Date: 20131205
  Transmission Date: 20140711
  Serious: No
  Sender: FDA-Public Use
  Company Number: US-ROXANE LABORATORIES, INC.-2013-RO-01902RO

PATIENT
  Age: 27 Year
  Sex: Male

DRUGS (1)
  1. MERCAPTOPURINE [Suspect]
     Indication: COLITIS
     Dosage: 50 MG
     Route: 048

REACTIONS (2)
  - Dehydration [Not Recovered/Not Resolved]
  - Alcohol interaction [Not Recovered/Not Resolved]
